FAERS Safety Report 8838130 (Version 3)
Quarter: 2012Q4

REPORT INFORMATION
  Report Type: Report from Study
  Country: CA (occurrence: CA)
  Receive Date: 20121012
  Receipt Date: 20121109
  Transmission Date: 20130627
  Serious: Yes (Other)
  Sender: FDA-Public Use
  Company Number: CA-ROCHE-1144657

PATIENT
  Age: 35 Year
  Sex: Female
  Weight: 75 kg

DRUGS (7)
  1. TOCILIZUMAB [Suspect]
     Indication: RHEUMATOID ARTHRITIS
     Route: 042
     Dates: start: 20120716
  2. MOTRIN [Concomitant]
  3. LOSEC (CANADA) [Concomitant]
  4. FERROUS GLUCONATE [Concomitant]
  5. TYLENOL ARTHRITIS [Concomitant]
     Route: 065
  6. AMOXICLAV [Concomitant]
     Route: 065
  7. PREDNISONE [Concomitant]

REACTIONS (2)
  - Rheumatoid arthritis [Not Recovered/Not Resolved]
  - Drug administration error [Unknown]
